FAERS Safety Report 7095782-7 (Version None)
Quarter: 2010Q4

REPORT INFORMATION
  Report Type: 
  Country: None (occurrence: None)
  Receive Date: 20101109
  Receipt Date: 20101109
  Transmission Date: 20110411
  Serious: Yes (Hospitalization)
  Sender: FDA-Public Use
  Company Number: None

PATIENT
  Sex: Male
  Weight: 58.514 kg

DRUGS (8)
  1. IXABEPILONE: DAY 1,8 AND 15 OF EACH CYCLE [Suspect]
     Indication: SYNOVIAL SARCOMA METASTATIC
     Dosage: 26 MG CYCLE 1 DAY 1: 1/20/10
     Dates: start: 20100120
  2. SUNITINIB MALATE [Suspect]
     Dosage: 37.5 MG   CYCLE 1 DAY 8: 1/27/10
     Dates: start: 20100127
  3. OXYCONTIN [Concomitant]
  4. GABAPENTIN [Concomitant]
  5. ONDANSETRON [Concomitant]
  6. METHADONE [Concomitant]
  7. VITAMIN B-12 [Concomitant]
  8. POTASSIUM CHLORIDE [Concomitant]

REACTIONS (1)
  - CHEST PAIN [None]
